FAERS Safety Report 8554684-7 (Version None)
Quarter: 2012Q3

REPORT INFORMATION
  Report Type: 
  Country: None (occurrence: None)
  Receive Date: 20120731
  Receipt Date: 20120724
  Transmission Date: 20120928
  Serious: Yes (Other)
  Sender: FDA-Public Use
  Company Number: PHHY2011CA95772

PATIENT
  Sex: Male

DRUGS (5)
  1. EXJADE [Suspect]
     Dosage: 125 MG, QOD
     Route: 048
     Dates: start: 20120101
  2. PREVACID [Concomitant]
     Indication: GASTROOESOPHAGEAL REFLUX DISEASE
  3. PREDNISONE [Concomitant]
     Dosage: 5 MG, BID
     Route: 048
  4. EXJADE [Suspect]
     Dosage: 375 MG, UNK
     Route: 048
  5. EXJADE [Suspect]
     Indication: CONGENITAL APLASTIC ANAEMIA
     Dosage: 250 MG, QD
     Route: 048
     Dates: start: 20110101

REACTIONS (14)
  - DENTAL CARIES [None]
  - PAIN [None]
  - SERUM FERRITIN INCREASED [None]
  - VISUAL ACUITY REDUCED [None]
  - LUNG INFECTION [None]
  - TOOTH DISORDER [None]
  - HAEMOGLOBIN DECREASED [None]
  - HYPERMETROPIA [None]
  - FATIGUE [None]
  - ABDOMINAL DISCOMFORT [None]
  - GAZE PALSY [None]
  - STRABISMUS [None]
  - ABDOMINAL PAIN UPPER [None]
  - EAR INFECTION [None]
